FAERS Safety Report 15602296 (Version 2)
Quarter: 2018Q4

REPORT INFORMATION
  Report Type: Report from Study
  Country: DE (occurrence: DE)
  Receive Date: 20181109
  Receipt Date: 20181119
  Transmission Date: 20190205
  Serious: Yes (Death)
  Sender: FDA-Public Use
  Company Number: DE-BEH-2018096641

PATIENT
  Age: 73 Year
  Sex: Male
  Weight: 73 kg

DRUGS (13)
  1. RAMIPRIL. [Concomitant]
     Active Substance: RAMIPRIL
  2. PRIVIGEN [Suspect]
     Active Substance: HUMAN IMMUNOGLOBULIN G
     Indication: SECONDARY IMMUNODEFICIENCY
     Dosage: 10 G, TOT
     Route: 042
     Dates: start: 20180719, end: 20180719
  3. PRIVIGEN [Suspect]
     Active Substance: HUMAN IMMUNOGLOBULIN G
     Dosage: 10 G, TOT
     Route: 042
     Dates: start: 20181004, end: 20181004
  4. BISOPROLOL [Concomitant]
     Active Substance: BISOPROLOL
  5. FOSTER                             /00500401/ [Concomitant]
     Active Substance: PIROXICAM
  6. PRIVIGEN [Suspect]
     Active Substance: HUMAN IMMUNOGLOBULIN G
     Dosage: 10 G, TOT
     Route: 042
     Dates: start: 20180920, end: 20180920
  7. VIANI [Concomitant]
     Active Substance: FLUTICASONE PROPIONATE\SALMETEROL XINAFOATE
  8. PRIVIGEN [Suspect]
     Active Substance: HUMAN IMMUNOGLOBULIN G
     Indication: CHRONIC LYMPHOCYTIC LEUKAEMIA
     Dosage: 10 G, TOT
     Route: 042
     Dates: start: 20180705, end: 20180705
  9. SIMVASTATIN. [Concomitant]
     Active Substance: SIMVASTATIN
  10. MIRTAZAPIN [Concomitant]
     Active Substance: MIRTAZAPINE
  11. PRIVIGEN [Suspect]
     Active Substance: HUMAN IMMUNOGLOBULIN G
     Indication: INFECTION
     Dosage: 10 G, TOT
     Route: 042
     Dates: start: 20180802, end: 20180802
  12. PRIVIGEN [Suspect]
     Active Substance: HUMAN IMMUNOGLOBULIN G
     Dosage: 10 G, TOT
     Route: 042
     Dates: start: 20180830, end: 20180830
  13. PRIVIGEN [Suspect]
     Active Substance: HUMAN IMMUNOGLOBULIN G
     Dosage: 10 G, TOT
     Route: 042
     Dates: start: 20180816, end: 20180816

REACTIONS (2)
  - Sudden cardiac death [Fatal]
  - Myocardial infarction [Fatal]

NARRATIVE: CASE EVENT DATE: 20181105
